FAERS Safety Report 25018521 (Version 1)
Quarter: 2025Q1

REPORT INFORMATION
  Report Type: Spontaneous
  Country: US (occurrence: US)
  Receive Date: 20250227
  Receipt Date: 20250227
  Transmission Date: 20250409
  Serious: No
  Sender: AVADEL CNS PHARMACEUTICALS, LLC
  Company Number: US-AVADEL CNS PHARMACEUTICALS, LLC-2024AVA02223

PATIENT
  Sex: Female

DRUGS (5)
  1. LUMRYZ [Suspect]
     Active Substance: SODIUM OXYBATE
     Indication: Narcolepsy
     Dosage: 4.5 G, ONCE NIGHTLY
     Dates: start: 20241107, end: 202411
  2. LUMRYZ [Suspect]
     Active Substance: SODIUM OXYBATE
     Indication: Narcolepsy
     Dates: start: 202411, end: 20241201
  3. LUMRYZ [Suspect]
     Active Substance: SODIUM OXYBATE
     Indication: Narcolepsy
     Dosage: 9 G, ONCE NIGHTLY
     Dates: start: 20241202
  4. WAKIX [Concomitant]
     Active Substance: PITOLISANT HYDROCHLORIDE
  5. ALCOHOL [Concomitant]
     Active Substance: ALCOHOL

REACTIONS (17)
  - Hypersomnia [Recovering/Resolving]
  - Tachyphrenia [Not Recovered/Not Resolved]
  - Crying [Unknown]
  - Fatigue [Recovering/Resolving]
  - Thirst [Recovered/Resolved]
  - Insomnia [Not Recovered/Not Resolved]
  - Sleep-related eating disorder [Recovering/Resolving]
  - Paraesthesia [Unknown]
  - Nocturia [Recovering/Resolving]
  - Enuresis [Recovered/Resolved]
  - Confusional state [Unknown]
  - Emotional disorder [Unknown]
  - Disorientation [Unknown]
  - Depressed mood [Unknown]
  - Unevaluable event [Recovering/Resolving]
  - Wrong technique in product usage process [Not Recovered/Not Resolved]
  - Intentional dose omission [Recovered/Resolved]

NARRATIVE: CASE EVENT DATE: 20240101
